FAERS Safety Report 9713395 (Version 1)
Quarter: 2013Q4

REPORT INFORMATION
  Report Type: Spontaneous
  Country: US (occurrence: None)
  Receive Date: 20131125
  Receipt Date: 20131125
  Transmission Date: 20140711
  Serious: No
  Sender: FDA-Public Use
  Company Number: None

PATIENT
  Age: 58 Year
  Sex: Female
  Weight: 69.4 kg

DRUGS (1)
  1. SUCCINYLCHOLINE [Suspect]
     Indication: SURGERY
     Dosage: 1 DOSE IN SURGERY
     Route: 042
     Dates: start: 20131008, end: 20131008

REACTIONS (6)
  - Pain [None]
  - Arthralgia [None]
  - Myalgia [None]
  - Tendon pain [None]
  - Procedural pain [None]
  - Drug effect decreased [None]
